FAERS Safety Report 15188702 (Version 1)
Quarter: 2018Q3

REPORT INFORMATION
  Report Type: Spontaneous
  Country: US (occurrence: US)
  Receive Date: 20180724
  Receipt Date: 20180724
  Transmission Date: 20181010
  Serious: No
  Sender: FDA-Public Use
  Company Number: US-PFIZER INC-2018296539

PATIENT
  Age: 50 Year
  Sex: Female

DRUGS (1)
  1. IBRANCE [Suspect]
     Active Substance: PALBOCICLIB
     Indication: BREAST CANCER
     Dosage: 125 MG, DAILY
     Route: 048
     Dates: start: 20180327

REACTIONS (5)
  - Condition aggravated [Unknown]
  - Asthenia [Unknown]
  - Chills [Unknown]
  - Bone pain [Unknown]
  - Constipation [Unknown]

NARRATIVE: CASE EVENT DATE: 20180720
